FAERS Safety Report 8408488-6 (Version None)
Quarter: 2012Q2

REPORT INFORMATION
  Report Type: 
  Country: None (occurrence: None)
  Receive Date: 20120604
  Receipt Date: 20120522
  Transmission Date: 20120825
  Serious: Yes (Death, Life-Threatening, Hospitalization, Other)
  Sender: FDA-Public Use
  Company Number: DK-MYLANLABS-2012S1010763

PATIENT
  Age: 71 Year
  Sex: Female
  Weight: 80 kg

DRUGS (5)
  1. ASPIRIN [Concomitant]
     Indication: PRODUCT USED FOR UNKNOWN INDICATION
     Dosage: 300-500 MG, LOADING DOSE
  2. PRASUGREL HYDROCHLORIDE [Concomitant]
     Indication: ANGINA PECTORIS
     Dosage: LOADING DOSE
     Dates: start: 20100616
  3. PRASUGREL HYDROCHLORIDE [Concomitant]
     Dosage: MAINTENANCE DOSE
     Dates: start: 20100616
  4. CLOPIDOGREL [Suspect]
     Indication: PRODUCT USED FOR UNKNOWN INDICATION
  5. ASPIRIN [Concomitant]
     Dosage: 100 MG, QD, MAINTENANCE DOSE

REACTIONS (4)
  - CARDIAC FAILURE [None]
  - CARDIAC ARREST [None]
  - ACUTE MYOCARDIAL INFARCTION [None]
  - ELECTROLYTE IMBALANCE [None]
